FAERS Safety Report 8359472-2 (Version None)
Quarter: 2012Q2

REPORT INFORMATION
  Report Type: 
  Country: None (occurrence: None)
  Receive Date: 20120515
  Receipt Date: 20120507
  Transmission Date: 20120825
  Serious: Yes (Hospitalization, Other)
  Sender: FDA-Public Use
  Company Number: US-BAYER-2011-082433

PATIENT
  Age: 24 Year
  Sex: Female
  Weight: 126.8 kg

DRUGS (7)
  1. NITROFURANT MACRO [Concomitant]
     Dosage: 100 MG, UNK
     Route: 048
     Dates: start: 20081120
  2. ZANTAC [Concomitant]
  3. YASMIN [Suspect]
     Dosage: UNK
     Dates: start: 20050925, end: 20070211
  4. VICODIN [Concomitant]
     Dosage: UNK UNK, PRN
     Route: 048
  5. RANITIDINE [Concomitant]
     Dosage: 300 MG, QD
     Route: 048
  6. PROTONIX [Concomitant]
  7. METFORMIN HCL [Concomitant]
     Dosage: UNK UNK, TID
     Route: 048

REACTIONS (14)
  - GALLBLADDER DISORDER [None]
  - PAIN [None]
  - CHOLECYSTITIS CHRONIC [None]
  - POST PROCEDURAL CONSTIPATION [None]
  - POST PROCEDURAL DIARRHOEA [None]
  - CHOLECYSTITIS INFECTIVE [None]
  - ABDOMINAL PAIN UPPER [None]
  - PROCEDURAL PAIN [None]
  - INJURY [None]
  - INSOMNIA [None]
  - DYSPEPSIA [None]
  - EATING DISORDER [None]
  - PROCEDURAL NAUSEA [None]
  - ABDOMINAL DISTENSION [None]
